FAERS Safety Report 4726521-X (Version None)
Quarter: 2005Q3

REPORT INFORMATION
  Report Type: 
  Country: None (occurrence: None)
  Receive Date: 20050725
  Receipt Date: 20050311
  Transmission Date: 20060218
  Serious: No
  Sender: FDA-Public Use
  Company Number: USA050393013

PATIENT
  Age: 13 Year
  Sex: Male
  Weight: 48 kg

DRUGS (2)
  1. STRATTERA [Suspect]
     Indication: ATTENTION DEFICIT/HYPERACTIVITY DISORDER
     Dosage: 80 MG
     Dates: start: 20040311
  2. CELEXA [Concomitant]

REACTIONS (2)
  - PRESCRIBED OVERDOSE [None]
  - WEIGHT DECREASED [None]
